FAERS Safety Report 25885746 (Version 3)
Quarter: 2025Q4

REPORT INFORMATION
  Report Type: Report from Study
  Country: IN (occurrence: IN)
  Receive Date: 20251006
  Receipt Date: 20251210
  Transmission Date: 20260118
  Serious: Yes (Other)
  Sender: PFIZER
  Company Number: IN-PFIZER INC-PV202300134445

PATIENT
  Age: 72 Year
  Sex: Male

DRUGS (4)
  1. DACOMITINIB [Suspect]
     Active Substance: DACOMITINIB
     Indication: Lung neoplasm malignant
     Dosage: 15 MG AND 30 MG OD ALTERNATELY
     Route: 048
  2. DACOMITINIB [Suspect]
     Active Substance: DACOMITINIB
     Dosage: 15 MG OR 30 MG ON THE ALTERNATE DAYS
     Route: 048
  3. MEGESTROL ACETATE [Suspect]
     Active Substance: MEGESTROL ACETATE
     Dosage: 40 MG, 2X/DAY
  4. URSOCOL [Concomitant]
     Dosage: 300 MG, 2X/DAY

REACTIONS (8)
  - Blood pressure systolic increased [Unknown]
  - Prostatic disorder [Unknown]
  - Weight increased [Recovering/Resolving]
  - Heart rate increased [Recovered/Resolved]
  - Blood pressure diastolic decreased [Unknown]
  - Prostatic specific antigen increased [Unknown]
  - Off label use [Unknown]
  - Off label use [Unknown]

NARRATIVE: CASE EVENT DATE: 20230921
